FAERS Safety Report 17740733 (Version 2)
Quarter: 2020Q2

REPORT INFORMATION
  Report Type: Report from Study
  Country: IT (occurrence: IT)
  Receive Date: 20200504
  Receipt Date: 20200514
  Transmission Date: 20200714
  Serious: Yes (Life-Threatening)
  Sender: FDA-Public Use
  Company Number: IT-ACCORD-180743

PATIENT
  Age: 48 Year
  Sex: Male
  Weight: 0 kg

DRUGS (9)
  1. HYDROCHLOROTHIAZIDE /OLMESARTAN [Suspect]
     Active Substance: HYDROCHLOROTHIAZIDE\OLMESARTAN MEDOXOMIL
     Route: 048
     Dates: start: 20200321, end: 20200321
  2. PAROXETINE. [Concomitant]
     Active Substance: PAROXETINE
     Indication: BIPOLAR DISORDER
     Route: 048
  3. DOXAZOSIN [Suspect]
     Active Substance: DOXAZOSIN MESYLATE
     Route: 048
     Dates: start: 20200321, end: 20200321
  4. PAROXETINE. [Suspect]
     Active Substance: PAROXETINE
     Indication: DRUG ABUSE
     Route: 048
     Dates: start: 20200321, end: 20200321
  5. PAROXETINE. [Suspect]
     Active Substance: PAROXETINE
     Route: 048
     Dates: start: 20200321, end: 20200321
  6. OLANZAPINE. [Concomitant]
     Active Substance: OLANZAPINE
     Indication: BIPOLAR DISORDER
     Route: 048
  7. OLANZAPINE. [Suspect]
     Active Substance: OLANZAPINE
     Indication: BIPOLAR DISORDER
     Route: 048
  8. OLANZAPINE. [Suspect]
     Active Substance: OLANZAPINE
     Route: 048
     Dates: start: 20200321, end: 20200321
  9. VENLAFAXINE [Suspect]
     Active Substance: VENLAFAXINE HYDROCHLORIDE
     Route: 048
     Dates: start: 20200321, end: 20200321

REACTIONS (4)
  - Sopor [Recovering/Resolving]
  - Intentional self-injury [Unknown]
  - Bundle branch block [Recovering/Resolving]
  - Drug abuse [Unknown]

NARRATIVE: CASE EVENT DATE: 20200321
